FAERS Safety Report 9845701 (Version 1)
Quarter: 2013Q4

REPORT INFORMATION
  Report Type: Spontaneous
  Country: US (occurrence: None)
  Receive Date: 20131223
  Receipt Date: 20131223
  Transmission Date: 20140711
  Serious: Yes (Other)
  Sender: FDA-Public Use
  Company Number: 2013US-74645

PATIENT
  Sex: Male

DRUGS (1)
  1. ABSORICA [Suspect]

REACTIONS (1)
  - Mood altered [None]
